FAERS Safety Report 5084183-9 (Version None)
Quarter: 2006Q3

REPORT INFORMATION
  Report Type: 
  Country: None (occurrence: None)
  Receive Date: 20060821
  Receipt Date: 20050519
  Transmission Date: 20061208
  Serious: Yes (Hospitalization)
  Sender: FDA-Public Use
  Company Number: US-BRISTOL-MYERS SQUIBB COMPANY-12975447

PATIENT
  Age: 50 Year
  Sex: Male
  Weight: 65 kg

DRUGS (9)
  1. TEQUIN [Suspect]
     Indication: PNEUMONIA
     Route: 048
     Dates: start: 20050516, end: 20050519
  2. STAVUDINE [Concomitant]
  3. LAMIVUDINE [Concomitant]
  4. KALETRA [Concomitant]
  5. BACLOFEN [Concomitant]
  6. CELEXA [Concomitant]
  7. TOPROL-XL [Concomitant]
  8. PROTONIX [Concomitant]
  9. NIFEDIPINE [Concomitant]

REACTIONS (1)
  - CONFUSIONAL STATE [None]
